FAERS Safety Report 19061103 (Version 1)
Quarter: 2021Q1

REPORT INFORMATION
  Report Type: Spontaneous
  Country: IL (occurrence: IL)
  Receive Date: 20210325
  Receipt Date: 20210325
  Transmission Date: 20210420
  Serious: Yes (Other)
  Sender: FDA-Public Use
  Company Number: IL-SA-2021SA094516

PATIENT
  Sex: Male

DRUGS (1)
  1. STERONASE AQ [Suspect]
     Active Substance: TRIAMCINOLONE ACETONIDE
     Dosage: UNK
     Route: 065

REACTIONS (2)
  - Chorioretinopathy [Unknown]
  - Subretinal fluid [Unknown]
